FAERS Safety Report 5601554-X (Version None)
Quarter: 2008Q1

REPORT INFORMATION
  Report Type: 
  Country: None (occurrence: None)
  Receive Date: 20080124
  Receipt Date: 20080117
  Transmission Date: 20080703
  Serious: Yes (Other)
  Sender: FDA-Public Use
  Company Number: BR-ASTRAZENECA-2008UW01454

PATIENT
  Age: 86 Year
  Sex: Female
  Weight: 75 kg

DRUGS (5)
  1. ATACAND [Suspect]
     Indication: HYPERTENSION
     Route: 048
     Dates: start: 20070801, end: 20080117
  2. SOMALGIN CARDIO [Concomitant]
     Route: 048
     Dates: start: 20070801
  3. SIMVASTATINA [Concomitant]
     Indication: HYPERCHOLESTEROLAEMIA
     Route: 048
  4. VENALOT [Concomitant]
     Route: 048
  5. ATACAND HCT [Concomitant]

REACTIONS (2)
  - BLOOD PRESSURE INCREASED [None]
  - DRUG INEFFECTIVE [None]
